FAERS Safety Report 7350358-9 (Version None)
Quarter: 2011Q1

REPORT INFORMATION
  Report Type: 
  Country: None (occurrence: None)
  Receive Date: 20110314
  Receipt Date: 20110309
  Transmission Date: 20110831
  Serious: Yes (Death, Hospitalization, Other)
  Sender: FDA-Public Use
  Company Number: JP-ABBOTT-11P-087-0705933-00

PATIENT
  Sex: Male

DRUGS (6)
  1. LAMIVUDINE [Concomitant]
     Indication: HIV INFECTION
     Dates: end: 20100301
  2. ZERIT [Concomitant]
     Indication: HIV INFECTION
     Dates: end: 20100301
  3. TRUVADA [Suspect]
     Indication: HIV INFECTION
     Route: 048
     Dates: start: 20100427, end: 20110114
  4. BAKTAR [Suspect]
     Indication: PNEUMOCYSTIS JIROVECI PNEUMONIA
     Route: 048
     Dates: end: 20110114
  5. BAKTAR [Suspect]
     Indication: PROPHYLAXIS
  6. KALETRA [Suspect]
     Indication: HIV INFECTION
     Dosage: 4 DOSAGE FORMS DAILY
     Route: 048
     Dates: start: 20070912, end: 20110114

REACTIONS (14)
  - RENAL FAILURE ACUTE [None]
  - FALL [None]
  - MELAENA [None]
  - ACIDOSIS [None]
  - RHABDOMYOLYSIS [None]
  - MULTI-ORGAN FAILURE [None]
  - FRACTURED ISCHIUM [None]
  - HEPATIC FAILURE [None]
  - SPINAL COMPRESSION FRACTURE [None]
  - DYSPNOEA [None]
  - HEPATIC CIRRHOSIS [None]
  - LACTIC ACIDOSIS [None]
  - HAEMATEMESIS [None]
  - HAEMATOCHEZIA [None]
